FAERS Safety Report 9206110 (Version 1)
Quarter: 2013Q1

REPORT INFORMATION
  Report Type: Spontaneous
  Country: US (occurrence: None)
  Receive Date: 20120731
  Receipt Date: 20120731
  Transmission Date: 20140127
  Serious: No
  Sender: FDA-Public Use
  Company Number: US200811003362

PATIENT
  Age: 58 Year
  Sex: Male
  Weight: 82.5 kg

DRUGS (4)
  1. BYETTA (EXENATIDE) PEN, DISPOSABLE [Suspect]
     Indication: DIABETES MELLITUS
     Route: 058
     Dates: start: 200506, end: 200507
  2. METFORMIN (METFORMIN) [Concomitant]
  3. ACTOS/USA/(PIOGLITAZONE HYDROCHLORIDE) [Concomitant]
  4. NOVOLOG (INSULIN ASPART) [Concomitant]

REACTIONS (4)
  - Weight decreased [None]
  - Drug effect decreased [None]
  - Nausea [None]
  - Off label use [None]
